FAERS Safety Report 25191067 (Version 2)
Quarter: 2025Q2

REPORT INFORMATION
  Report Type: Spontaneous
  Country: CN (occurrence: CN)
  Receive Date: 20250411
  Receipt Date: 20250516
  Transmission Date: 20250716
  Serious: Yes (Hospitalization)
  Sender: ESTEVE
  Company Number: CN-ESTEVE-2025-00615

PATIENT
  Age: 49 Year
  Sex: Male
  Weight: 57 kg

DRUGS (2)
  1. LYSODREN [Suspect]
     Active Substance: MITOTANE
     Indication: Adrenocortical carcinoma
  2. LYSODREN [Suspect]
     Active Substance: MITOTANE
     Dates: start: 20250221, end: 20250303

REACTIONS (4)
  - Gingival polyp [Recovering/Resolving]
  - Drug eruption [Recovering/Resolving]
  - Pyrexia [Recovered/Resolved]
  - Chills [Recovered/Resolved]

NARRATIVE: CASE EVENT DATE: 20250301
